FAERS Safety Report 19479969 (Version 3)
Quarter: 2021Q3

REPORT INFORMATION
  Report Type: Spontaneous
  Country: HU (occurrence: HU)
  Receive Date: 20210701
  Receipt Date: 20210723
  Transmission Date: 20211014
  Serious: Yes (Life-Threatening, Hospitalization, Other)
  Sender: FDA-Public Use
  Company Number: HU-ACCORD-229669

PATIENT
  Age: 29 Year
  Sex: Male
  Weight: 62 kg

DRUGS (12)
  1. ZUCLOPENTHIXOL/ZUCLOPENTHIXOL ACETATE/ZUCLOPENTHIXOL DECANOATE/ZUCLOPENTHIXOL HYDROCHLORIDE [Concomitant]
     Active Substance: ZUCLOPENTHIXOL
     Indication: PSYCHOTIC SYMPTOM
     Dosage: LONG?ACTING INJECTION
     Dates: start: 202003
  2. ZUCLOPENTHIXOL/ZUCLOPENTHIXOL ACETATE/ZUCLOPENTHIXOL DECANOATE/ZUCLOPENTHIXOL HYDROCHLORIDE [Concomitant]
     Active Substance: ZUCLOPENTHIXOL
     Indication: PSYCHOTIC SYMPTOM
     Dosage: LONG?ACTING INJECTION 2 TIMES, WITH THE SECOND GIVEN ON 06?MAY
     Dates: start: 202003
  3. VALPROIC ACID. [Concomitant]
     Active Substance: VALPROIC ACID
     Indication: AFFECT LABILITY
     Dosage: 2 X 50?MG
     Dates: start: 202003
  4. VALPROIC ACID. [Concomitant]
     Active Substance: VALPROIC ACID
     Indication: SCHIZOPHRENIA
     Dosage: 2 X 50?MG
     Dates: start: 202003
  5. CLOZAPINE. [Suspect]
     Active Substance: CLOZAPINE
     Indication: SCHIZOPHRENIA
     Dosage: THE FINAL DOSE WAS 175 MG/D, CUMULATIVE  DOSE: 2500 MG
     Route: 048
     Dates: start: 20200318, end: 20200507
  6. HALOPERIDOL. [Concomitant]
     Active Substance: HALOPERIDOL
     Indication: PSYCHOTIC SYMPTOM
     Dates: start: 2020
  7. OLANZAPINE. [Concomitant]
     Active Substance: OLANZAPINE
     Indication: PSYCHOTIC SYMPTOM
     Dates: start: 2020
  8. CLONAZEPAM. [Concomitant]
     Active Substance: CLONAZEPAM
     Dosage: 3 X 0.5?MG
     Dates: start: 2020
  9. VALPROIC ACID. [Concomitant]
     Active Substance: VALPROIC ACID
     Indication: PSYCHOTIC DISORDER
     Dosage: 2 X 50?MG
     Dates: start: 202003
  10. ZUCLOPENTHIXOL/ZUCLOPENTHIXOL ACETATE/ZUCLOPENTHIXOL DECANOATE/ZUCLOPENTHIXOL HYDROCHLORIDE [Concomitant]
     Active Substance: ZUCLOPENTHIXOL
     Indication: PSYCHOTIC SYMPTOM
     Dosage: LONG?ACTING INJECTION
     Dates: start: 20200506
  11. ZUCLOPENTHIXOL/ZUCLOPENTHIXOL ACETATE/ZUCLOPENTHIXOL DECANOATE/ZUCLOPENTHIXOL HYDROCHLORIDE [Concomitant]
     Active Substance: ZUCLOPENTHIXOL
     Indication: PSYCHOTIC SYMPTOM
     Dates: start: 202003
  12. CLOZAPINE. [Suspect]
     Active Substance: CLOZAPINE
     Indication: SUBSTANCE-INDUCED PSYCHOTIC DISORDER
     Dosage: THE FINAL DOSE WAS 175 MG/D, CUMULATIVE  DOSE: 2500 MG
     Route: 048
     Dates: start: 20200318, end: 20200507

REACTIONS (3)
  - Malignant catatonia [Recovered/Resolved]
  - Withdrawal syndrome [Recovered/Resolved]
  - Neuroleptic malignant syndrome [Recovered/Resolved]

NARRATIVE: CASE EVENT DATE: 20200512
